FAERS Safety Report 8598661-9 (Version None)
Quarter: 2012Q3

REPORT INFORMATION
  Report Type: 
  Country: None (occurrence: None)
  Receive Date: 20120816
  Receipt Date: 20120802
  Transmission Date: 20120928
  Serious: Yes (Other)
  Sender: FDA-Public Use
  Company Number: FR-ROCHE-1100506

PATIENT

DRUGS (1)
  1. ALTEPLASE [Suspect]
     Indication: CEREBROVASCULAR ACCIDENT

REACTIONS (1)
  - HYPOFIBRINOGENAEMIA [None]
